FAERS Safety Report 10995541 (Version 1)
Quarter: 2015Q2

REPORT INFORMATION
  Report Type: Not Available
  Country: DE (occurrence: DE)
  Receive Date: 20150407
  Receipt Date: 20150407
  Transmission Date: 20150821
  Serious: Yes (Death, Hospitalization, Other)
  Sender: FDA-Public Use
  Company Number: DE-CELGENE-062-50794-10080606

PATIENT

DRUGS (5)
  1. DONOR LYMPHOCYTE INFUSION [Suspect]
     Active Substance: UNSPECIFIED INGREDIENT
     Indication: PRODUCT USED FOR UNKNOWN INDICATION
     Dosage: 1-5X10EXP6 - 1-5X10EXP8 CELL/KG
     Route: 065
  2. VIDAZA [Suspect]
     Active Substance: AZACITIDINE
     Indication: MYELOPROLIFERATIVE DISORDER
  3. VIDAZA [Suspect]
     Active Substance: AZACITIDINE
     Indication: MYELODYSPLASTIC SYNDROME
     Route: 058
  4. VIDAZA [Suspect]
     Active Substance: AZACITIDINE
     Indication: ACUTE MYELOID LEUKAEMIA
     Route: 058
  5. RED BLOOD CELLS, CONCENTRATED [Concomitant]
     Active Substance: HUMAN RED BLOOD CELL
     Indication: PRODUCT USED FOR UNKNOWN INDICATION
     Route: 041

REACTIONS (19)
  - Gastrointestinal disorder [Unknown]
  - Treatment failure [Unknown]
  - Acute graft versus host disease [Fatal]
  - Death [Fatal]
  - Disease progression [Fatal]
  - No therapeutic response [Unknown]
  - Skin reaction [Unknown]
  - Haemorrhage [Fatal]
  - C-reactive protein increased [Unknown]
  - Toxicity to various agents [Unknown]
  - Chronic graft versus host disease [Unknown]
  - Neutropenia [Unknown]
  - Haematotoxicity [Unknown]
  - Anaemia [Unknown]
  - Cytopenia [Unknown]
  - Neoplasm recurrence [Unknown]
  - Infection [Fatal]
  - Thrombocytopenia [Unknown]
  - Infection [Unknown]
